FAERS Safety Report 23969190 (Version 1)
Quarter: 2024Q2

REPORT INFORMATION
  Report Type: Spontaneous
  Country: US (occurrence: US)
  Receive Date: 20240612
  Receipt Date: 20240612
  Transmission Date: 20240716
  Serious: Yes (Hospitalization, Other)
  Sender: FDA-Public Use
  Company Number: US-DRL-USA-LIT/USA/24/0008443

PATIENT
  Age: 28 Year
  Sex: Male

DRUGS (1)
  1. METHAMPHETAMINE [Suspect]
     Active Substance: METHAMPHETAMINE
     Indication: Product used for unknown indication
     Route: 054

REACTIONS (6)
  - Drug abuse [Unknown]
  - Toxicity to various agents [Unknown]
  - Hypertension [Unknown]
  - Substance-induced psychotic disorder [Unknown]
  - Tachycardia [Unknown]
  - Blood creatine phosphokinase increased [Unknown]
